FAERS Safety Report 23448450 (Version 5)
Quarter: 2024Q2

REPORT INFORMATION
  Report Type: Spontaneous
  Country: JP (occurrence: JP)
  Receive Date: 20240127
  Receipt Date: 20240426
  Transmission Date: 20240716
  Serious: Yes (Hospitalization)
  Sender: FDA-Public Use
  Company Number: JP-ABBVIE-5602054

PATIENT
  Age: 75 Year
  Sex: Male
  Weight: 69 kg

DRUGS (16)
  1. RINVOQ [Suspect]
     Active Substance: UPADACITINIB
     Indication: Rheumatoid arthritis
     Dosage: FORM STRENGTH: 15 MILLIGRAM
     Route: 048
     Dates: start: 20230404, end: 20240116
  2. ALENDRONATE SODIUM [Concomitant]
     Active Substance: ALENDRONATE SODIUM
     Indication: Osteoporosis
     Route: 048
  3. SULFASALAZINE [Concomitant]
     Active Substance: SULFASALAZINE
     Indication: Rheumatoid arthritis
     Dosage: 1 TABLET
     Route: 048
     Dates: start: 202301, end: 2023
  4. SULFASALAZINE [Concomitant]
     Active Substance: SULFASALAZINE
     Indication: Rheumatoid arthritis
     Dosage: 2 TABLET?LAST ADMIN DATE-2023
     Route: 048
     Dates: start: 202302
  5. SULFASALAZINE [Concomitant]
     Active Substance: SULFASALAZINE
     Indication: Rheumatoid arthritis
     Dosage: 1 TABLET?REDUCED
     Route: 048
     Dates: start: 20230808, end: 20230904
  6. FOLIC ACID [Concomitant]
     Active Substance: FOLIC ACID
     Indication: Rheumatoid arthritis
     Route: 048
     Dates: start: 20220119, end: 20240220
  7. RHEUMATREX [Suspect]
     Active Substance: METHOTREXATE SODIUM
     Indication: Rheumatoid arthritis
     Dosage: LAST ADMIN DATE-2023?FORM STRENGTH: 2 MILLIGRAM
     Route: 048
     Dates: start: 20230118
  8. RHEUMATREX [Suspect]
     Active Substance: METHOTREXATE SODIUM
     Indication: Rheumatoid arthritis
     Dosage: LAST ADMIN DATE-2022?FORM STRENGTH: 2 MILLIGRAM
     Route: 048
     Dates: start: 20220524
  9. RHEUMATREX [Suspect]
     Active Substance: METHOTREXATE SODIUM
     Indication: Rheumatoid arthritis
     Dosage: LAST ADMIN DATE-2022?FORM STRENGTH: 2 MILLIGRAM
     Route: 048
     Dates: start: 20221206
  10. RHEUMATREX [Suspect]
     Active Substance: METHOTREXATE SODIUM
     Indication: Rheumatoid arthritis
     Dosage: 7 TABLETS PER WEEKS,?LAST ADMIN DATE-2022?FORM STRENGTH: 2 MILLIGRAM
     Route: 048
     Dates: start: 20220301
  11. RHEUMATREX [Suspect]
     Active Substance: METHOTREXATE SODIUM
     Indication: Rheumatoid arthritis
     Dosage: LAST ADMIN DATE-2023?FORM STRENGTH: 2 MILLIGRAM
     Route: 048
     Dates: start: 20230404
  12. RHEUMATREX [Suspect]
     Active Substance: METHOTREXATE SODIUM
     Indication: Rheumatoid arthritis
     Dosage: LAST ADMIN DATE-2022?FORM STRENGTH: 2 MILLIGRAM
     Route: 048
     Dates: start: 20220118
  13. RHEUMATREX [Suspect]
     Active Substance: METHOTREXATE SODIUM
     Indication: Rheumatoid arthritis
     Dosage: LAST ADMIN DATE-2022?FORM STRENGTH: 2 MILLIGRAM
     Route: 048
     Dates: start: 20220621
  14. RHEUMATREX [Suspect]
     Active Substance: METHOTREXATE SODIUM
     Indication: Rheumatoid arthritis
     Dosage: FORM STRENGTH: 2 MILLIGRAM
     Route: 048
     Dates: start: 20231212, end: 20240220
  15. LOXOPROFEN SODIUM DIHYDRATE [Concomitant]
     Active Substance: LOXOPROFEN SODIUM DIHYDRATE
     Indication: Rheumatoid arthritis
     Dosage: AS-NEEDED USE
     Dates: start: 20230613
  16. LOXOPROFEN SODIUM DIHYDRATE [Concomitant]
     Active Substance: LOXOPROFEN SODIUM DIHYDRATE
     Indication: Rheumatoid arthritis
     Dates: end: 20220510

REACTIONS (1)
  - Pneumonia [Recovering/Resolving]

NARRATIVE: CASE EVENT DATE: 20240116
